FAERS Safety Report 9928077 (Version 1)
Quarter: 2014Q1

REPORT INFORMATION
  Report Type: Report from Study
  Country: US (occurrence: US)
  Receive Date: 20140227
  Receipt Date: 20140227
  Transmission Date: 20141002
  Serious: Yes (Hospitalization, Other)
  Sender: FDA-Public Use
  Company Number: US-ROCHE-1356834

PATIENT
  Sex: Male

DRUGS (2)
  1. LUCENTIS [Suspect]
     Indication: PRODUCT USED FOR UNKNOWN INDICATION
     Dosage: BOTH EYES
     Route: 050
  2. INSULIN [Concomitant]

REACTIONS (4)
  - Renal impairment [Unknown]
  - Gallbladder disorder [Unknown]
  - Appendix disorder [Unknown]
  - Vomiting [Unknown]
